FAERS Safety Report 18907505 (Version 1)
Quarter: 2021Q1

REPORT INFORMATION
  Report Type: Spontaneous
  Country: JP (occurrence: JP)
  Receive Date: 20210218
  Receipt Date: 20210218
  Transmission Date: 20210420
  Serious: Yes (Hospitalization)
  Sender: FDA-Public Use
  Company Number: JP-ASTRAZENECA-2021A051546

PATIENT
  Age: 95 Year
  Sex: Female

DRUGS (1)
  1. FORXIGA [Suspect]
     Active Substance: DAPAGLIFLOZIN
     Indication: TYPE 2 DIABETES MELLITUS
     Route: 048
     Dates: start: 202012, end: 202101

REACTIONS (1)
  - Hyperglycaemic hyperosmolar nonketotic syndrome [Recovered/Resolved]

NARRATIVE: CASE EVENT DATE: 202101
